FAERS Safety Report 13639444 (Version 1)
Quarter: 2017Q2

REPORT INFORMATION
  Report Type: Spontaneous
  Country: US (occurrence: US)
  Receive Date: 20170609
  Receipt Date: 20170609
  Transmission Date: 20170830
  Serious: No
  Sender: FDA-Public Use
  Company Number: US-ROCHE-1362087

PATIENT
  Sex: Female

DRUGS (2)
  1. KLONOPIN [Suspect]
     Active Substance: CLONAZEPAM
     Indication: PRODUCT USED FOR UNKNOWN INDICATION
     Route: 065
  2. BUTRANS [Concomitant]
     Active Substance: BUPRENORPHINE

REACTIONS (5)
  - Pharyngitis streptococcal [Recovered/Resolved]
  - Dizziness [Unknown]
  - Pyrexia [Unknown]
  - Mydriasis [Unknown]
  - Overdose [Unknown]
